FAERS Safety Report 10728688 (Version 1)
Quarter: 2015Q1

REPORT INFORMATION
  Report Type: Spontaneous
  Country: US (occurrence: None)
  Receive Date: 20150120
  Receipt Date: 20150120
  Transmission Date: 20150721
  Serious: No
  Sender: FDA-Public Use
  Company Number: None

PATIENT
  Age: 14 Year
  Sex: Female
  Weight: 43.09 kg

DRUGS (1)
  1. VYVANSE [Suspect]
     Active Substance: LISDEXAMFETAMINE DIMESYLATE
     Indication: ATTENTION DEFICIT/HYPERACTIVITY DISORDER
     Route: 048
     Dates: start: 20140812, end: 20150115

REACTIONS (11)
  - Impulsive behaviour [None]
  - Tremor [None]
  - Obsessive thoughts [None]
  - Vomiting [None]
  - Intentional self-injury [None]
  - Product substitution issue [None]
  - Anger [None]
  - Aggression [None]
  - Social avoidant behaviour [None]
  - Mood swings [None]
  - Bipolar I disorder [None]

NARRATIVE: CASE EVENT DATE: 20150115
